FAERS Safety Report 25459232 (Version 1)
Quarter: 2025Q2

REPORT INFORMATION
  Report Type: Spontaneous
  Country: GB (occurrence: GB)
  Receive Date: 20250620
  Receipt Date: 20250620
  Transmission Date: 20250716
  Serious: Yes (Life-Threatening, Hospitalization, Other)
  Sender: NOVO NORDISK
  Company Number: GB-NOVOPROD-1458982

PATIENT

DRUGS (1)
  1. WEGOVY [Suspect]
     Active Substance: SEMAGLUTIDE
     Indication: Weight control

REACTIONS (5)
  - Coma [Unknown]
  - Ill-defined disorder [Unknown]
  - Constipation [Unknown]
  - Wound treatment [Unknown]
  - Pain [Unknown]
